FAERS Safety Report 6246421-6 (Version None)
Quarter: 2009Q2

REPORT INFORMATION
  Report Type: 
  Country: None (occurrence: None)
  Receive Date: 20090624
  Receipt Date: 20090624
  Transmission Date: 20091009
  Serious: No
  Sender: FDA-Public Use
  Company Number: None

PATIENT
  Age: 31 Year
  Sex: Male
  Weight: 104.3273 kg

DRUGS (2)
  1. METHYLPREDNISOLONE [Suspect]
     Indication: PREOPERATIVE CARE
     Dosage: METHYLPREDNISOLONE AS INDICATED PO
     Route: 048
     Dates: start: 20090614, end: 20090624
  2. AVELOX [Suspect]
     Dosage: AVELOX DAILY PO
     Route: 048

REACTIONS (2)
  - ASTHENIA [None]
  - PAIN [None]
